FAERS Safety Report 8868655 (Version 1)
Quarter: 2012Q4

REPORT INFORMATION
  Report Type: 
  Country: US (occurrence: US)
  Receive Date: 20121024
  Receipt Date: 20121024
  Transmission Date: 20130627
  Serious: No
  Sender: FDA-Public Use
  Company Number: US-BAYER-2012-111691

PATIENT
  Age: 55 Year
  Sex: Female
  Weight: 64.4 kg

DRUGS (1)
  1. BETASERON [Suspect]
     Indication: MULTIPLE SCLEROSIS
     Dosage: UNK UNK, QOD
     Route: 058
     Dates: start: 20120809

REACTIONS (2)
  - Injection site reaction [Unknown]
  - Injection site pain [Unknown]
